FAERS Safety Report 9923061 (Version 1)
Quarter: 2014Q1

REPORT INFORMATION
  Report Type: Spontaneous
  Country: US (occurrence: US)
  Receive Date: 20140225
  Receipt Date: 20140225
  Transmission Date: 20141002
  Serious: No
  Sender: FDA-Public Use
  Company Number: US-AMGEN-USASP2013069544

PATIENT
  Age: 44 Year
  Sex: Female

DRUGS (5)
  1. ENBREL [Suspect]
     Indication: PRODUCT USED FOR UNKNOWN INDICATION
     Dosage: 50 MG, QWK
     Route: 058
  2. ALEVE [Concomitant]
     Dosage: 220 MG, UNK
  3. HYDROCODONE/HOMATROPINE [Concomitant]
     Dosage: 5-1.5/5, UNK
  4. LANSOPRAZOLE [Concomitant]
     Dosage: 3 MG/ML, UNK
  5. CITALOPRAM [Concomitant]
     Dosage: 10 MG, UNK

REACTIONS (1)
  - Sinusitis [Unknown]
